FAERS Safety Report 8400692-6 (Version None)
Quarter: 2012Q2

REPORT INFORMATION
  Report Type: 
  Country: None (occurrence: None)
  Receive Date: 20120531
  Receipt Date: 20120522
  Transmission Date: 20120825
  Serious: Yes (Hospitalization)
  Sender: FDA-Public Use
  Company Number: US-TEVA-2011004222

PATIENT
  Sex: Male
  Weight: 138.8 kg

DRUGS (14)
  1. ELAVIL [Concomitant]
  2. ZOFRAN [Concomitant]
  3. REGLAN [Concomitant]
  4. MORPHINE SULFATE [Concomitant]
  5. ESOMEPRAZOLE MAGNESIUM [Concomitant]
     Dates: start: 20110721
  6. DEXAMETHASONE [Suspect]
     Indication: MULTIPLE MYELOMA
     Dates: start: 20110614, end: 20110713
  7. POTASSIUM CHLORIDE [Concomitant]
     Dates: start: 20110721
  8. COMPAZINE [Concomitant]
  9. CELEXA [Concomitant]
  10. BUPROPION HCL [Concomitant]
  11. TREANDA [Suspect]
     Indication: MULTIPLE MYELOMA
     Route: 041
     Dates: start: 20110614, end: 20110713
  12. LENALIDOMIDE [Suspect]
     Indication: MULTIPLE MYELOMA
     Dates: start: 20110614, end: 20110713
  13. FIORICET [Concomitant]
  14. ATIVAN [Concomitant]

REACTIONS (1)
  - ABDOMINAL PAIN [None]
